FAERS Safety Report 20776214 (Version 1)
Quarter: 2022Q2

REPORT INFORMATION
  Report Type: Spontaneous
  Country: RU (occurrence: RU)
  Receive Date: 20220502
  Receipt Date: 20220502
  Transmission Date: 20220721
  Serious: Yes (Hospitalization)
  Sender: FDA-Public Use
  Company Number: RU-SEBELA IRELAND LIMITED-2022SEB00019

PATIENT
  Age: 28 Year
  Sex: Male

DRUGS (1)
  1. PAROXETINE [Suspect]
     Active Substance: PAROXETINE
     Indication: Depression
     Dosage: 20 MG, 1X/DAY
     Route: 065

REACTIONS (2)
  - Restrictive cardiomyopathy [Recovered/Resolved]
  - Drug-induced liver injury [Recovered/Resolved]
